FAERS Safety Report 7819632-3 (Version None)
Quarter: 2011Q4

REPORT INFORMATION
  Report Type: 
  Country: None (occurrence: None)
  Receive Date: 20111013
  Receipt Date: 20111003
  Transmission Date: 20120403
  Serious: Yes (Other)
  Sender: FDA-Public Use
  Company Number: 1000024550

PATIENT
  Age: 62 Year
  Sex: Female
  Weight: 62.8 kg

DRUGS (1)
  1. ROFLUMILAST (ROFLUMILAST) [Suspect]

REACTIONS (2)
  - SWELLING FACE [None]
  - SWOLLEN TONGUE [None]
